FAERS Safety Report 16944994 (Version 1)
Quarter: 2019Q4

REPORT INFORMATION
  Report Type: Spontaneous
  Country: CN (occurrence: CN)
  Receive Date: 20191022
  Receipt Date: 20191022
  Transmission Date: 20200122
  Serious: Yes (Other)
  Sender: FDA-Public Use
  Company Number: CN-PFIZER INC-2019452355

PATIENT
  Age: 64 Year
  Sex: Male

DRUGS (2)
  1. TYGACIL [Suspect]
     Active Substance: TIGECYCLINE
     Indication: ILEUS PARALYTIC
     Dosage: 50 MG, 2X/DAY
     Route: 041
     Dates: start: 20190911, end: 20190911
  2. TYGACIL [Suspect]
     Active Substance: TIGECYCLINE
     Indication: ABDOMINAL INFECTION

REACTIONS (1)
  - Drug-induced liver injury [Not Recovered/Not Resolved]

NARRATIVE: CASE EVENT DATE: 20190917
